FAERS Safety Report 10450276 (Version 1)
Quarter: 2014Q3

REPORT INFORMATION
  Report Type: Spontaneous
  Country: US (occurrence: US)
  Receive Date: 20140912
  Receipt Date: 20140912
  Transmission Date: 20150326
  Serious: No
  Sender: FDA-Public Use
  Company Number: US-ELI_LILLY_AND_COMPANY-US201408009964

PATIENT
  Age: 73 Year
  Sex: Female

DRUGS (1)
  1. EVISTA [Suspect]
     Active Substance: RALOXIFENE HYDROCHLORIDE
     Indication: PRODUCT USED FOR UNKNOWN INDICATION
     Route: 065

REACTIONS (6)
  - Hearing impaired [Unknown]
  - Cataract [Unknown]
  - Solar lentigo [Unknown]
  - Weight increased [Unknown]
  - Constipation [Unknown]
  - Ocular hyperaemia [Unknown]
